FAERS Safety Report 18111387 (Version 1)
Quarter: 2020Q3

REPORT INFORMATION
  Report Type: Other
  Country: TR (occurrence: TR)
  Receive Date: 20200804
  Receipt Date: 20200804
  Transmission Date: 20201103
  Serious: Yes (Death, Life-Threatening, Hospitalization)
  Sender: FDA-Public Use
  Company Number: TR-NOSTRUM LABORATORIES, INC.-2088151

PATIENT
  Age: 49 Year
  Sex: Female

DRUGS (1)
  1. CARBAMAZEPINE EXTENDED?RELEASE [Suspect]
     Active Substance: CARBAMAZEPINE
     Indication: EPILEPSY
     Route: 048

REACTIONS (6)
  - Intentional overdose [Fatal]
  - Acute respiratory distress syndrome [Fatal]
  - Respiratory failure [Fatal]
  - Extubation [Fatal]
  - Iatrogenic injury [Fatal]
  - Sepsis [Fatal]
